FAERS Safety Report 18591576 (Version 3)
Quarter: 2021Q1

REPORT INFORMATION
  Report Type: Spontaneous
  Country: US (occurrence: US)
  Receive Date: 20201208
  Receipt Date: 20210113
  Transmission Date: 20210419
  Serious: Yes (Other)
  Sender: FDA-Public Use
  Company Number: US-GE HEALTHCARE LIFE SCIENCES-2020CSU006246

PATIENT
  Age: 52 Year
  Sex: Female
  Weight: 97.96 kg

DRUGS (2)
  1. OMNIPAQUE [Suspect]
     Active Substance: IOHEXOL
     Indication: COMPUTERISED TOMOGRAM ABDOMEN
     Dosage: 80 ML, SINGLE
     Route: 042
     Dates: start: 20201125, end: 20201125
  2. OMNIPAQUE [Suspect]
     Active Substance: IOHEXOL
     Indication: PAIN

REACTIONS (2)
  - Vomiting [Recovered/Resolved]
  - Throat tightness [Recovered/Resolved]

NARRATIVE: CASE EVENT DATE: 20201125
